FAERS Safety Report 11721256 (Version 2)
Quarter: 2015Q4

REPORT INFORMATION
  Report Type: Spontaneous
  Country: IT (occurrence: IT)
  Receive Date: 20151110
  Receipt Date: 20151203
  Transmission Date: 20160304
  Serious: Yes (Death, Other)
  Sender: FDA-Public Use
  Company Number: IT-HOSPIRA-3068535

PATIENT
  Age: 43 Year
  Sex: Male

DRUGS (1)
  1. DIAZEPAM. [Suspect]
     Active Substance: DIAZEPAM
     Indication: SEDATIVE THERAPY
     Route: 065

REACTIONS (5)
  - Swelling [Fatal]
  - Splenic rupture [Fatal]
  - Internal haemorrhage [Fatal]
  - Self injurious behaviour [Fatal]
  - Rib fracture [Fatal]
